FAERS Safety Report 5251619-X (Version None)
Quarter: 2007Q1

REPORT INFORMATION
  Report Type: 
  Country: None (occurrence: None)
  Receive Date: 20070228
  Receipt Date: 20060927
  Transmission Date: 20070707
  Serious: No
  Sender: FDA-Public Use
  Company Number: US-GLAXOSMITHKLINE-A0621663A

PATIENT
  Age: 68 Year
  Sex: Male

DRUGS (6)
  1. LAMICTAL [Suspect]
     Indication: PARTIAL SEIZURES
     Dosage: 75MG TWICE PER DAY
     Route: 048
     Dates: start: 20051101
  2. FOSAMAX [Concomitant]
  3. ATENOLOL [Concomitant]
  4. MULTI-VITAMIN [Concomitant]
  5. VITAMIN D [Concomitant]
  6. CALCIUM [Concomitant]

REACTIONS (1)
  - LIBIDO INCREASED [None]
